FAERS Safety Report 7565683-6 (Version None)
Quarter: 2011Q2

REPORT INFORMATION
  Report Type: 
  Country: None (occurrence: None)
  Receive Date: 20110623
  Receipt Date: 20100617
  Transmission Date: 20111010
  Serious: No
  Sender: FDA-Public Use
  Company Number: US-MUTUAL PHARMACEUTICAL COMPANY, INC.-1-23088810

PATIENT
  Sex: Male
  Weight: 97.61 kg

DRUGS (5)
  1. REGLAN [Suspect]
     Indication: IMPAIRED GASTRIC EMPTYING
     Route: 065
     Dates: start: 20090710
  2. PHENERGAN, GLUCOPHAGE (METFORMIN), [Concomitant]
  3. NEXIUM (ESOMEPRAZOLE), TEMAZEPAM, HERBAL PRODUCTS [Concomitant]
  4. METOCLOPRAMIDE [Suspect]
     Indication: IMPAIRED GASTRIC EMPTYING
     Route: 065
     Dates: start: 20090701, end: 20100101
  5. MIRAPEX (PRAMIPEXOLE), SINEMENT (CARBIDOPA-LEVODOPA), [Concomitant]

REACTIONS (4)
  - EMOTIONAL DISORDER [None]
  - EXTRAPYRAMIDAL DISORDER [None]
  - INCORRECT DRUG ADMINISTRATION DURATION [None]
  - DYSKINESIA [None]
